FAERS Safety Report 15006644 (Version 1)
Quarter: 2018Q2

REPORT INFORMATION
  Report Type: Spontaneous
  Country: US (occurrence: US)
  Receive Date: 20180526
  Receipt Date: 20180526
  Transmission Date: 20180711
  Serious: Yes (Other)
  Sender: FDA-Public Use
  Company Number: None

PATIENT
  Age: 45 Year
  Sex: Female
  Weight: 74.25 kg

DRUGS (3)
  1. ORAL BIRTH CONTROL [Concomitant]
  2. TRI-LO-MARZIA [Suspect]
     Active Substance: ETHINYL ESTRADIOL\NORGESTIMATE
     Indication: CONTRACEPTION
     Dosage: ?          QUANTITY:28 ;?
     Route: 048
     Dates: start: 20180506, end: 20180525
  3. VITAMIN D [Concomitant]
     Active Substance: CHOLECALCIFEROL

REACTIONS (2)
  - Miliaria [None]
  - Urticaria [None]

NARRATIVE: CASE EVENT DATE: 20180513
